FAERS Safety Report 5104517-6 (Version None)
Quarter: 2006Q3

REPORT INFORMATION
  Report Type: 
  Country: None (occurrence: None)
  Receive Date: 20060914
  Receipt Date: 20060715
  Transmission Date: 20061208
  Serious: Yes (Hospitalization)
  Sender: FDA-Public Use
  Company Number: PHEH2006US09168

PATIENT
  Age: 23 Year
  Sex: Female
  Weight: 50.793 kg

DRUGS (5)
  1. EXJADE [Suspect]
     Indication: SICKLE CELL ANAEMIA
     Dosage: 1000 MG, ONCE/SINGLE
     Route: 048
     Dates: start: 20060512
  2. HYDREA [Concomitant]
     Indication: SICKLE CELL ANAEMIA
     Dosage: 1 G, UNK
  3. MOTRIN [Concomitant]
     Indication: PAIN
     Dosage: 800 MG, PRN
  4. DEPO-PROVERA [Concomitant]
     Indication: CONTRACEPTION
     Dosage: 150 MG, Q3MO
     Route: 030
  5. FOLIC ACID [Concomitant]
     Dosage: 1 MG, UNK

REACTIONS (8)
  - ALANINE AMINOTRANSFERASE INCREASED [None]
  - ASPARTATE AMINOTRANSFERASE INCREASED [None]
  - BLOOD BILIRUBIN INCREASED [None]
  - CHOLELITHIASIS [None]
  - JAUNDICE [None]
  - PAIN [None]
  - SCLERITIS [None]
  - SICKLE CELL ANAEMIA WITH CRISIS [None]
